FAERS Safety Report 4587226-1 (Version None)
Quarter: 2005Q1

REPORT INFORMATION
  Report Type: 
  Country: None (occurrence: None)
  Receive Date: 20050218
  Receipt Date: 20041125
  Transmission Date: 20050727
  Serious: Yes (Life-Threatening)
  Sender: FDA-Public Use
  Company Number: JP-GLAXOSMITHKLINE-B0358383A

PATIENT
  Age: 62 Year
  Sex: Male
  Weight: 95 kg

DRUGS (3)
  1. ZEFIX [Suspect]
     Indication: HEPATIC CIRRHOSIS
     Dosage: 100MG PER DAY
     Route: 048
     Dates: start: 20010313, end: 20040421
  2. HUMALOG [Concomitant]
     Indication: DIABETES MELLITUS
     Dosage: 63.99IU PER DAY
     Route: 058
  3. PENFILL 30R [Concomitant]
     Indication: DIABETES MELLITUS
     Dosage: 8IU PER DAY
     Route: 058

REACTIONS (6)
  - HAEMOGLOBIN DECREASED [None]
  - MYELODYSPLASTIC SYNDROME [None]
  - PLATELET COUNT DECREASED [None]
  - RED BLOOD CELL COUNT DECREASED [None]
  - REFRACTORY ANAEMIA [None]
  - WHITE BLOOD CELL COUNT DECREASED [None]
